FAERS Safety Report 7835234-7 (Version None)
Quarter: 2011Q4

REPORT INFORMATION
  Report Type: 
  Country: None (occurrence: None)
  Receive Date: 20111020
  Receipt Date: 20111011
  Transmission Date: 20120403
  Serious: Yes (Life-Threatening, Hospitalization)
  Sender: FDA-Public Use
  Company Number: LEO-2011-00833

PATIENT
  Age: 72 Year
  Sex: Female

DRUGS (2)
  1. INNOHEP [Suspect]
     Indication: THROMBOSIS PROPHYLAXIS
     Dosage: SUBCUTANEOUS
     Route: 058
     Dates: start: 20110812, end: 20110814
  2. PREVISCAN (FLUINDIONE) [Suspect]
     Indication: THROMBOSIS PROPHYLAXIS
     Dosage: ORAL
     Route: 048
     Dates: start: 20110501, end: 20110811

REACTIONS (12)
  - HAEMOGLOBIN DECREASED [None]
  - ACTIVATED PARTIAL THROMBOPLASTIN TIME PROLONGED [None]
  - FALL [None]
  - BLOOD PRESSURE SYSTOLIC INCREASED [None]
  - COAGULATION FACTOR X LEVEL INCREASED [None]
  - URETERAL DISORDER [None]
  - SHOCK HAEMORRHAGIC [None]
  - RETROPERITONEAL HAEMATOMA [None]
  - MUSCLE HAEMORRHAGE [None]
  - CARDIAC FAILURE [None]
  - AMNESIA [None]
  - MUSCULAR WEAKNESS [None]
